FAERS Safety Report 8371052-1 (Version None)
Quarter: 2012Q1

REPORT INFORMATION
  Report Type: 
  Country: None (occurrence: None)
  Receive Date: 20120323
  Receipt Date: 20110524
  Transmission Date: 20120608
  Serious: Yes (Hospitalization, Disabling)
  Sender: FDA-Public Use
  Company Number: 163-21880-11012904

PATIENT
  Age: 50 Year
  Sex: Male
  Weight: 75.2971 kg

DRUGS (8)
  1. DOXORUBICIN HCL [Concomitant]
  2. DEXAMETHASONE [Concomitant]
  3. REVLIMID [Suspect]
     Indication: MULTIPLE MYELOMA
     Dosage: PO; 15 MG, DAILY ON DAYS 1-21, PO
     Route: 048
     Dates: start: 20101101
  4. REVLIMID [Suspect]
     Indication: MULTIPLE MYELOMA
     Dosage: PO; 15 MG, DAILY ON DAYS 1-21, PO
     Route: 048
     Dates: start: 20070101
  5. CYCLOPHOSPHAMIDE [Concomitant]
  6. VELCADE [Concomitant]
  7. CISPLATIN [Concomitant]
  8. ETOPOSIDE [Concomitant]

REACTIONS (1)
  - MULTIPLE MYELOMA [None]
